FAERS Safety Report 24203375 (Version 2)
Quarter: 2024Q3

REPORT INFORMATION
  Report Type: Spontaneous
  Country: US (occurrence: US)
  Receive Date: 20240813
  Receipt Date: 20240826
  Transmission Date: 20241017
  Serious: No
  Sender: LEO PHARM
  Company Number: US-LEO Pharma-372638

PATIENT
  Sex: Male

DRUGS (4)
  1. ADBRY [Suspect]
     Active Substance: TRALOKINUMAB-LDRM
     Indication: Dermatitis contact
     Dosage: 4 INJECTIONS OF ADBRY? SUBCUTANEOUSLY ADMINISTERED AT THE DOCTOR?S OFFICE
     Route: 058
  2. ADBRY [Suspect]
     Active Substance: TRALOKINUMAB-LDRM
     Indication: Dermatitis contact
     Dosage: 2 INJECTIONS EVERY TWO WEEKS
     Route: 058
  3. NEURONTIN [Concomitant]
     Active Substance: GABAPENTIN
     Indication: Product used for unknown indication
  4. Wegovy/Ozempic [Concomitant]
     Indication: Product used for unknown indication

REACTIONS (6)
  - Abdominal pain [Recovering/Resolving]
  - Injection site pain [Recovered/Resolved]
  - Abdominal discomfort [Recovering/Resolving]
  - Gastrointestinal pain [Recovering/Resolving]
  - Diarrhoea [Recovering/Resolving]
  - Prostatitis [Recovering/Resolving]
